FAERS Safety Report 9853470 (Version 3)
Quarter: 2014Q1

REPORT INFORMATION
  Report Type: Spontaneous
  Country: US (occurrence: US)
  Receive Date: 20140129
  Receipt Date: 20140319
  Transmission Date: 20141002
  Serious: No
  Sender: FDA-Public Use
  Company Number: US-009507513-1401USA013239

PATIENT
  Age: 33 Year
  Sex: Female
  Weight: 50 kg

DRUGS (1)
  1. NEXPLANON [Suspect]
     Dosage: 68 MG/ONE ROD EVERY 3 YEARS

REACTIONS (3)
  - Laceration [Recovered/Resolved]
  - Accidental exposure to product [Unknown]
  - Product quality issue [Unknown]
